FAERS Safety Report 6104123-0 (Version None)
Quarter: 2009Q1

REPORT INFORMATION
  Report Type: 
  Country: None (occurrence: None)
  Receive Date: 20090227
  Receipt Date: 20090216
  Transmission Date: 20090719
  Serious: Yes (Hospitalization)
  Sender: FDA-Public Use
  Company Number: 1000004926

PATIENT
  Age: 81 Year
  Sex: Male

DRUGS (3)
  1. MEMANTINE HCL [Suspect]
     Indication: DEMENTIA ALZHEIMER'S TYPE
     Dosage: 20 MG (10 MG, 2 IN 1 D), ORAL
     Route: 048
     Dates: start: 20070301, end: 20081027
  2. EXELON (CAPSULES) [Concomitant]
  3. CHIBRO-PROSCAR (TABLETS) [Concomitant]

REACTIONS (1)
  - PANCREATITIS ACUTE [None]
